FAERS Safety Report 6344409-8 (Version None)
Quarter: 2009Q3

REPORT INFORMATION
  Report Type: 
  Country: None (occurrence: None)
  Receive Date: 20090908
  Receipt Date: 20090828
  Transmission Date: 20100115
  Serious: Yes (Other)
  Sender: FDA-Public Use
  Company Number: PHEH2008US06601

PATIENT
  Sex: Female

DRUGS (34)
  1. ZOMETA [Suspect]
     Dosage: 4 MG, UNK
     Route: 042
     Dates: start: 20050101, end: 20070101
  2. LEVOXYL [Concomitant]
  3. THALOMID [Concomitant]
  4. LORAZEPAM [Concomitant]
  5. WARFARIN SODIUM [Concomitant]
  6. HYDROCODONE [Concomitant]
  7. CLINDAMYCIN HYDROCHLORIDE [Concomitant]
  8. POTASSIUM CHLORIDE [Concomitant]
  9. FENTANYL [Concomitant]
  10. FUROSEMIDE [Concomitant]
  11. CYMBALTA [Concomitant]
  12. DEXAMETHASONE [Concomitant]
  13. MEPHYTON [Concomitant]
  14. NYSTATIN [Concomitant]
  15. REVLIMID [Concomitant]
  16. ULTRAM [Concomitant]
  17. METRONIDAZOLE [Concomitant]
  18. AMBIEN [Concomitant]
  19. LYRICA [Concomitant]
  20. LEXAPRO [Concomitant]
  21. IBUPROFEN [Concomitant]
  22. AZITHROMYCIN [Concomitant]
  23. OXYCODONE [Concomitant]
  24. LISINOPRIL [Concomitant]
  25. CEPHALEXIN [Concomitant]
  26. FLUCONAZOLE [Concomitant]
  27. ZOLPIDEM TARTRATE [Concomitant]
  28. NORTRIPTYLINE HCL [Concomitant]
  29. CHLORHEXIDINE GLUCONATE [Concomitant]
  30. BIOTENE [Concomitant]
  31. DARVOCET-N 100 [Concomitant]
  32. FISH OIL [Concomitant]
  33. CALCIUM [Concomitant]
  34. BENICAR HCT [Concomitant]

REACTIONS (24)
  - ANXIETY [None]
  - APHTHOUS STOMATITIS [None]
  - BACK PAIN [None]
  - DECREASED INTEREST [None]
  - DEPRESSED MOOD [None]
  - DIVERTICULITIS [None]
  - FATIGUE [None]
  - HAEMATEMESIS [None]
  - HOT FLUSH [None]
  - INJURY [None]
  - INTERVERTEBRAL DISC DEGENERATION [None]
  - MUSCULOSKELETAL DISCOMFORT [None]
  - ORAL PAIN [None]
  - OSTEOARTHRITIS [None]
  - OSTEOMYELITIS [None]
  - OSTEONECROSIS [None]
  - OTITIS MEDIA ACUTE [None]
  - PAIN [None]
  - RIB FRACTURE [None]
  - SPINAL COLUMN STENOSIS [None]
  - SPONDYLOLISTHESIS [None]
  - SWELLING [None]
  - TENDONITIS [None]
  - TOOTH EXTRACTION [None]
